FAERS Safety Report 4315517-8 (Version None)
Quarter: 2004Q1

REPORT INFORMATION
  Report Type: 
  Country: None (occurrence: None)
  Receive Date: 20040309
  Receipt Date: 20040224
  Transmission Date: 20041129
  Serious: Yes (Hospitalization)
  Sender: FDA-Public Use
  Company Number: US067738

PATIENT
  Age: 9 Year
  Sex: Male

DRUGS (2)
  1. ETANERCEPT [Suspect]
     Indication: JUVENILE ARTHRITIS
     Dosage: 25 MG, 2 IN 1 WEEKS, SC
     Route: 058
     Dates: start: 20030609, end: 20040225
  2. METHOTREXATE [Concomitant]

REACTIONS (4)
  - ABDOMINAL MASS [None]
  - GASTROINTESTINAL ISCHAEMIA [None]
  - INFLAMMATION [None]
  - PYREXIA [None]
